FAERS Safety Report 25645489 (Version 1)
Quarter: 2025Q3

REPORT INFORMATION
  Report Type: Spontaneous
  Country: GB (occurrence: GB)
  Receive Date: 20250805
  Receipt Date: 20250805
  Transmission Date: 20251020
  Serious: Yes (Other)
  Sender: SK LIFE SCIENCE
  Company Number: GB-ACRAF-2025-038581

PATIENT

DRUGS (3)
  1. XCOPRI [Suspect]
     Active Substance: CENOBAMATE
     Indication: Seizure
     Dosage: 150 MILLIGRAM
     Route: 065
     Dates: start: 202410, end: 202503
  2. LAMOTRIGINE [Concomitant]
     Active Substance: LAMOTRIGINE
     Indication: Product used for unknown indication
     Dosage: 200MG BD (TWICE A DAY)
     Route: 065
  3. LEVETIRACETAM [Concomitant]
     Active Substance: LEVETIRACETAM
     Indication: Product used for unknown indication
     Dosage: 1250MG BD (TWICE A DAY)
     Route: 065

REACTIONS (2)
  - Seizure [Unknown]
  - Exposure during pregnancy [Unknown]
